FAERS Safety Report 6774734-8 (Version None)
Quarter: 2010Q2

REPORT INFORMATION
  Report Type: 
  Country: None (occurrence: None)
  Receive Date: 20100616
  Receipt Date: 20100616
  Transmission Date: 20101027
  Serious: Yes (Hospitalization, Other)
  Sender: FDA-Public Use
  Company Number: None

PATIENT
  Age: 65 Year
  Sex: Male
  Weight: 111.1313 kg

DRUGS (1)
  1. JUNEVIA 100 MG ? [Suspect]
     Indication: DIABETES MELLITUS
     Dosage: 100MG 1 PER DAY PO
     Route: 048
     Dates: start: 20100215, end: 20100606

REACTIONS (1)
  - PANCREATITIS ACUTE [None]
